FAERS Safety Report 12699573 (Version 1)
Quarter: 2016Q3

REPORT INFORMATION
  Report Type: Spontaneous
  Country: DK (occurrence: FR)
  Receive Date: 20160830
  Receipt Date: 20160830
  Transmission Date: 20161109
  Serious: Yes (Hospitalization, Disabling)
  Sender: FDA-Public Use
  Company Number: FR-FRI-1000087148

PATIENT
  Age: 64 Year
  Sex: Male

DRUGS (9)
  1. RAMIPRIL. [Concomitant]
     Active Substance: RAMIPRIL
     Dosage: 5 MG
  2. ALEPSAL [Concomitant]
     Active Substance: CAFFEINE\PHENOBARBITAL
     Dosage: 150 MG
  3. ESCITALOPRAM [Suspect]
     Active Substance: ESCITALOPRAM OXALATE
     Indication: DEPRESSION
     Dosage: 10 MG
     Route: 048
  4. FORLAX [Concomitant]
     Active Substance: POLYETHYLENE GLYCOL 4000
  5. TEGRETOL LP [Concomitant]
     Active Substance: CARBAMAZEPINE
     Dosage: 800 MG
  6. TRAVATAN [Concomitant]
     Active Substance: TRAVOPROST
  7. KARDEGIC [Suspect]
     Active Substance: ASPIRIN LYSINE
     Indication: CEREBROVASCULAR ACCIDENT
     Dosage: 160 MG
     Route: 048
     Dates: end: 20160610
  8. ATORVASTATINE [Concomitant]
     Active Substance: ATORVASTATIN
     Dosage: 40 MG
  9. UVEDOSE [Concomitant]
     Active Substance: CHOLECALCIFEROL

REACTIONS (3)
  - Subdural haematoma [Recovered/Resolved with Sequelae]
  - Cerebral haemorrhage [Recovered/Resolved with Sequelae]
  - Extradural haematoma [Recovered/Resolved with Sequelae]

NARRATIVE: CASE EVENT DATE: 20160610
